FAERS Safety Report 6144812-5 (Version None)
Quarter: 2009Q2

REPORT INFORMATION
  Report Type: 
  Country: None (occurrence: None)
  Receive Date: 20090406
  Receipt Date: 20090324
  Transmission Date: 20091009
  Serious: Yes (Other)
  Sender: FDA-Public Use
  Company Number: US-ELI_LILLY_AND_COMPANY-US200903006910

PATIENT
  Age: 7 Year
  Sex: Male
  Weight: 19.048 kg

DRUGS (1)
  1. STRATTERA [Suspect]
     Dosage: 40 MG, UNKNOWN
     Route: 065

REACTIONS (2)
  - DECREASED APPETITE [None]
  - WEIGHT GAIN POOR [None]
